FAERS Safety Report 5981566-7 (Version None)
Quarter: 2008Q4

REPORT INFORMATION
  Report Type: 
  Country: None (occurrence: None)
  Receive Date: 20081205
  Receipt Date: 20081125
  Transmission Date: 20090506
  Serious: Yes (Hospitalization, Other)
  Sender: FDA-Public Use
  Company Number: US-ALLERGAN-0805549US

PATIENT
  Sex: Female
  Weight: 65.76 kg

DRUGS (5)
  1. BOTOX COSMETIC [Suspect]
     Indication: SKIN WRINKLING
     Dosage: 6 UNITS, SINGLE
     Route: 030
     Dates: start: 20070702, end: 20070702
  2. BOTOX COSMETIC [Suspect]
     Dosage: UNK, SINGLE
     Dates: start: 20070801, end: 20070801
  3. BOTOX COSMETIC [Suspect]
     Dosage: UNK, SINGLE
     Route: 030
     Dates: start: 20071101, end: 20071101
  4. DYAZIDE [Concomitant]
     Indication: HYPERTENSION
  5. KLOR-CON [Concomitant]
     Indication: HYPERTENSION
     Dosage: 10 MEQ, QD

REACTIONS (8)
  - APHASIA [None]
  - DYSPHAGIA [None]
  - DYSPHONIA [None]
  - DYSPNOEA [None]
  - INJECTION SITE ULCER [None]
  - SWOLLEN TONGUE [None]
  - TONGUE DISORDER [None]
  - WEIGHT DECREASED [None]
